FAERS Safety Report 9371639 (Version 6)
Quarter: 2016Q3

REPORT INFORMATION
  Report Type: Spontaneous
  Country: US (occurrence: US)
  Receive Date: 20130627
  Receipt Date: 20160812
  Transmission Date: 20161109
  Serious: Yes (Hospitalization, Other)
  Sender: FDA-Public Use
  Company Number: US-009507513-1306USA008989

PATIENT
  Sex: Female
  Weight: 83.9 kg

DRUGS (13)
  1. ESTRACE [Concomitant]
     Active Substance: ESTRADIOL
     Indication: MENOPAUSE
     Dosage: UNK
     Route: 065
     Dates: start: 20100212
  2. ALENDRONATE SODIUM. [Suspect]
     Active Substance: ALENDRONATE SODIUM
     Indication: OSTEOPENIA
  3. VITAMIN D [Concomitant]
     Active Substance: CHOLECALCIFEROL
     Indication: OSTEOPENIA
     Route: 065
  4. VITAMIN D [Concomitant]
     Active Substance: CHOLECALCIFEROL
     Indication: OSTEOPOROSIS
  5. FOSAMAX [Suspect]
     Active Substance: ALENDRONATE SODIUM
     Indication: OSTEOPOROSIS
     Dosage: 10 MG, QD
     Route: 048
     Dates: start: 20011001, end: 20080226
  6. ESTRADIOL. [Concomitant]
     Active Substance: ESTRADIOL
     Indication: MENOPAUSE
     Dosage: UNK
     Route: 065
     Dates: start: 20070607, end: 200802
  7. NASONEX [Concomitant]
     Active Substance: MOMETASONE FUROATE
     Indication: HYPERSENSITIVITY
     Dosage: UNK
     Route: 065
     Dates: start: 20100319
  8. FOSAMAX [Suspect]
     Active Substance: ALENDRONATE SODIUM
     Indication: OSTEOPENIA
     Dosage: 70 MG, QW
     Route: 048
     Dates: start: 20011001
  9. ALENDRONATE SODIUM. [Suspect]
     Active Substance: ALENDRONATE SODIUM
     Indication: OSTEOPOROSIS
     Dosage: 70 MG, QW
     Route: 065
     Dates: start: 20080227, end: 20121215
  10. FLUTICASONE [Concomitant]
     Active Substance: FLUTICASONE\FLUTICASONE PROPIONATE
     Indication: HYPERSENSITIVITY
     Dosage: UNK
     Route: 065
     Dates: start: 20111115, end: 20111215
  11. CALCIUM (UNSPECIFIED) [Concomitant]
     Active Substance: CALCIUM
     Indication: OSTEOPOROSIS
     Route: 065
  12. CLIMARA [Concomitant]
     Active Substance: ESTRADIOL
     Indication: MENOPAUSE
     Dosage: UNK
     Route: 065
     Dates: start: 20061011, end: 200703
  13. CALCIUM (UNSPECIFIED) [Concomitant]
     Active Substance: CALCIUM
     Indication: OSTEOPENIA

REACTIONS (48)
  - Femur fracture [Unknown]
  - Vitamin D deficiency [Unknown]
  - Infection [Unknown]
  - Depression [Unknown]
  - Catheterisation cardiac [Unknown]
  - Influenza [Unknown]
  - Spondylolisthesis [Unknown]
  - Pyrexia [Recovered/Resolved]
  - Back pain [Unknown]
  - Neck pain [Unknown]
  - Oedema [Unknown]
  - Neuropathy peripheral [Unknown]
  - Herpes zoster [Unknown]
  - Upper limb fracture [Unknown]
  - Low turnover osteopathy [Unknown]
  - Fibula fracture [Unknown]
  - Nasopharyngitis [Unknown]
  - Head injury [Unknown]
  - Contusion [Unknown]
  - Intervertebral disc degeneration [Unknown]
  - Open reduction of fracture [Unknown]
  - Femur fracture [Unknown]
  - Adverse event [Unknown]
  - Pain [Unknown]
  - Ulcer [Unknown]
  - Haemorrhoid operation [Unknown]
  - Dyspnoea [Unknown]
  - Transfusion [Unknown]
  - Polyneuropathy [Unknown]
  - Blood cholesterol increased [Unknown]
  - Nausea [Unknown]
  - Muscle spasms [Unknown]
  - Hypertension [Unknown]
  - Sleep disorder [Unknown]
  - Eye contusion [Unknown]
  - Mitral valve prolapse [Unknown]
  - Cough [Unknown]
  - Endometriosis [Unknown]
  - Bursitis [Unknown]
  - Osteoarthritis [Unknown]
  - Lumbar spinal stenosis [Unknown]
  - Headache [Unknown]
  - Open reduction of fracture [Unknown]
  - Vaginal infection [Unknown]
  - Fall [Unknown]
  - Weight increased [Unknown]
  - Lumbar radiculopathy [Unknown]
  - Fatigue [Unknown]

NARRATIVE: CASE EVENT DATE: 2001
